FAERS Safety Report 12152790 (Version 1)
Quarter: 2016Q1

REPORT INFORMATION
  Report Type: Spontaneous
  Country: CN (occurrence: CN)
  Receive Date: 20160304
  Receipt Date: 20160304
  Transmission Date: 20160526
  Serious: Yes (Hospitalization)
  Sender: FDA-Public Use
  Company Number: PHHY2016CN028398

PATIENT
  Age: 31 Year
  Sex: Male

DRUGS (4)
  1. OXCARBAZEPINE. [Suspect]
     Active Substance: OXCARBAZEPINE
     Indication: SEIZURE
     Dosage: UNK
     Route: 065
  2. DEPAKINE [Concomitant]
     Active Substance: VALPROATE SODIUM
     Indication: EPILEPSY
     Dosage: UNK
     Route: 065
  3. PHENOBARBITAL. [Suspect]
     Active Substance: PHENOBARBITAL
     Indication: SEIZURE
     Dosage: UNK
     Route: 065
  4. SODIUM BROMIDE [Suspect]
     Active Substance: SODIUM BROMIDE
     Indication: SEIZURE
     Dosage: UNK
     Route: 065

REACTIONS (12)
  - Pyrexia [Recovered/Resolved]
  - Rash [Recovered/Resolved]
  - Lip ulceration [Recovered/Resolved]
  - Skin ulcer [Recovered/Resolved]
  - Dyspnoea [Recovered/Resolved]
  - Tachypnoea [Recovered/Resolved]
  - Productive cough [Recovered/Resolved]
  - Hypoxia [Recovered/Resolved]
  - Drug reaction with eosinophilia and systemic symptoms [Recovered/Resolved]
  - Lung infection [Recovered/Resolved]
  - Dermatitis exfoliative [Recovered/Resolved]
  - Chest discomfort [Recovered/Resolved]
